FAERS Safety Report 15136205 (Version 1)
Quarter: 2018Q3

REPORT INFORMATION
  Report Type: Spontaneous
  Country: US (occurrence: US)
  Receive Date: 20180618
  Receipt Date: 20180618
  Transmission Date: 20181010
  Serious: Yes (Hospitalization)
  Sender: FDA-Public Use
  Company Number: None

PATIENT
  Age: 71 Year
  Sex: Male
  Weight: 81 kg

DRUGS (1)
  1. KEYTRUDA [Suspect]
     Active Substance: PEMBROLIZUMAB
     Indication: NON-SMALL CELL LUNG CANCER
     Route: 041
     Dates: start: 20180430, end: 20180525

REACTIONS (7)
  - Diverticulum intestinal haemorrhagic [None]
  - Dyspnoea [None]
  - Asthenia [None]
  - Hepatitis [None]
  - Gastrointestinal haemorrhage [None]
  - Jaundice [None]
  - Fatigue [None]

NARRATIVE: CASE EVENT DATE: 20180605
